FAERS Safety Report 10955438 (Version 4)
Quarter: 2015Q2

REPORT INFORMATION
  Report Type: Spontaneous
  Country: US (occurrence: US)
  Receive Date: 20150326
  Receipt Date: 20150622
  Transmission Date: 20150821
  Serious: Yes (Other)
  Sender: FDA-Public Use
  Company Number: US-AUROBINDO-AUR-APU-2015-02533

PATIENT
  Sex: Female

DRUGS (1)
  1. CLOPIDOGREL [Suspect]
     Active Substance: CLOPIDOGREL BISULFATE
     Indication: STENT PLACEMENT
     Dosage: 75 MG, 3 DAYS A WEEK TAKE PILL ONCE A DAY
     Route: 065
     Dates: start: 20150301

REACTIONS (3)
  - Product odour abnormal [Unknown]
  - Abdominal pain upper [Unknown]
  - Product quality issue [Unknown]
